FAERS Safety Report 9011699 (Version 1)
Quarter: 2013Q1

REPORT INFORMATION
  Report Type: Report from Study
  Country: NO (occurrence: NO)
  Receive Date: 20130107
  Receipt Date: 20130107
  Transmission Date: 20140127
  Serious: Yes (Death)
  Sender: FDA-Public Use
  Company Number: NO-ROCHE-1175658

PATIENT
  Age: 77 Year
  Sex: Male
  Weight: 62 kg

DRUGS (10)
  1. ALTEPLASE [Suspect]
     Indication: THROMBOSIS IN DEVICE
     Route: 042
     Dates: start: 19940510, end: 19940510
  2. HEPARIN SODIUM [Suspect]
     Indication: THROMBOSIS IN DEVICE
     Route: 065
  3. TRANDATE [Concomitant]
     Route: 065
     Dates: start: 19941114
  4. FERRUM [Concomitant]
     Route: 042
     Dates: start: 19941114
  5. EPREX [Concomitant]
     Route: 058
     Dates: start: 19941114
  6. ZANTAC [Concomitant]
     Route: 048
     Dates: start: 19941114
  7. FLAGYL [Concomitant]
     Route: 048
     Dates: start: 19941114
  8. PLENDIL [Concomitant]
     Route: 048
     Dates: start: 19941114
  9. BURINEX [Concomitant]
     Route: 048
     Dates: start: 19941114
  10. BURINEX [Concomitant]
     Route: 048
     Dates: start: 19941114

REACTIONS (1)
  - Cerebral infarction [Fatal]
